FAERS Safety Report 19063522 (Version 2)
Quarter: 2021Q1

REPORT INFORMATION
  Report Type: Report from Study
  Country: BR (occurrence: BR)
  Receive Date: 20210326
  Receipt Date: 20210328
  Transmission Date: 20210420
  Serious: Yes (Hospitalization)
  Sender: FDA-Public Use
  Company Number: BR-BIOGEN-2021BI00992502

PATIENT
  Sex: Female

DRUGS (5)
  1. CITONEURIN [Concomitant]
     Active Substance: CYANOCOBALAMIN\PYRIDOXINE HYDROCHLORIDE\THIAMINE
     Indication: PRODUCT USED FOR UNKNOWN INDICATION
     Route: 065
  2. TYSABRI [Suspect]
     Active Substance: NATALIZUMAB
     Indication: MULTIPLE SCLEROSIS
     Route: 042
     Dates: start: 20150805
  3. COGNITUS [Concomitant]
     Indication: MULTIPLE SCLEROSIS
     Route: 065
  4. LAMOTRIGINE. [Concomitant]
     Active Substance: LAMOTRIGINE
     Indication: PRODUCT USED FOR UNKNOWN INDICATION
     Route: 065
  5. SINTOCALMY [Concomitant]
     Indication: DEPRESSION
     Route: 065

REACTIONS (5)
  - Nephrolithiasis [Unknown]
  - Nervousness [Not Recovered/Not Resolved]
  - Kidney infection [Unknown]
  - Memory impairment [Not Recovered/Not Resolved]
  - Depression [Unknown]
